FAERS Safety Report 16453586 (Version 1)
Quarter: 2019Q2

REPORT INFORMATION
  Report Type: Report from Study
  Country: MX (occurrence: MX)
  Receive Date: 20190619
  Receipt Date: 20190619
  Transmission Date: 20190711
  Serious: Yes (Other)
  Sender: FDA-Public Use
  Company Number: PHHY2019MX140935

PATIENT
  Sex: Female

DRUGS (1)
  1. GALVUS MET [Suspect]
     Active Substance: METFORMIN HYDROCHLORIDE\VILDAGLIPTIN
     Indication: PRODUCT USED FOR UNKNOWN INDICATION
     Dosage: 1 DF (METFORMIN 500 MG, VILDAGLIPTIN 50 MG), BID (1 IN THE MORNING AND 1 BEFORE DINNER)
     Route: 048

REACTIONS (3)
  - Blindness [Unknown]
  - Accident [Unknown]
  - General physical condition abnormal [Unknown]
